FAERS Safety Report 17858620 (Version 2)
Quarter: 2020Q2

REPORT INFORMATION
  Report Type: Report from Study
  Country: None (occurrence: US)
  Receive Date: 20200604
  Receipt Date: 20200605
  Transmission Date: 20200714
  Serious: No
  Sender: FDA-Public Use
  Company Number: US-US WORLDMEDS, LLC-USW202001-000110

PATIENT
  Age: 72 Year
  Sex: Male
  Weight: 67.13 kg

DRUGS (2)
  1. LEVODOPA/CARBIDOPA [Concomitant]
     Active Substance: CARBIDOPA\LEVODOPA
     Dosage: UNKNOWN
  2. APOKYN [Suspect]
     Active Substance: APOMORPHINE HYDROCHLORIDE
     Indication: PARKINSON^S DISEASE
     Dosage: 30MG/3ML; 0.2 ML, 1 TO 2 TIMES DAILY
     Route: 058
     Dates: start: 20191205, end: 20200118

REACTIONS (3)
  - Syncope [Recovering/Resolving]
  - Skin laceration [Recovering/Resolving]
  - Bone contusion [Recovering/Resolving]

NARRATIVE: CASE EVENT DATE: 20200118
